FAERS Safety Report 15811628 (Version 3)
Quarter: 2020Q4

REPORT INFORMATION
  Report Type: Spontaneous
  Country: US (occurrence: US)
  Receive Date: 20190111
  Receipt Date: 20201125
  Transmission Date: 20210113
  Serious: Yes (Other)
  Sender: FDA-Public Use
  Company Number: US-PFIZER INC-2019011480

PATIENT
  Age: 57 Year
  Sex: Male
  Weight: 95.25 kg

DRUGS (1)
  1. LYRICA [Suspect]
     Active Substance: PREGABALIN
     Indication: TRIGEMINAL NEURALGIA
     Dosage: 300 MG, 2X/DAY
     Route: 048

REACTIONS (8)
  - Product prescribing error [Unknown]
  - Drug dependence [Unknown]
  - COVID-19 [Recovering/Resolving]
  - Illness [Unknown]
  - Withdrawal syndrome [Unknown]
  - Product dose omission issue [Unknown]
  - Asthenia [Unknown]
  - Fatigue [Unknown]
